FAERS Safety Report 8594149-X (Version None)
Quarter: 2012Q3

REPORT INFORMATION
  Report Type: 
  Country: None (occurrence: None)
  Receive Date: 20120814
  Receipt Date: 20120723
  Transmission Date: 20120928
  Serious: No
  Sender: FDA-Public Use
  Company Number: US-009507513-1207USA010716

PATIENT

DRUGS (1)
  1. CLARITIN [Suspect]
     Indication: RASH PRURITIC
     Dosage: UNK

REACTIONS (1)
  - DRUG INEFFECTIVE [None]
